FAERS Safety Report 17939418 (Version 3)
Quarter: 2020Q4

REPORT INFORMATION
  Report Type: Spontaneous
  Country: US (occurrence: US)
  Receive Date: 20200625
  Receipt Date: 20201006
  Transmission Date: 20210113
  Serious: No
  Sender: FDA-Public Use
  Company Number: US-ELI_LILLY_AND_COMPANY-US202006010297

PATIENT
  Sex: Female

DRUGS (2)
  1. HUMIRA [Suspect]
     Active Substance: ADALIMUMAB
     Indication: ANKYLOSING SPONDYLITIS
     Dosage: 40 MG, OTHER (1 IN 2 WEEK)
     Route: 058
     Dates: start: 20191214
  2. CYMBALTA [Suspect]
     Active Substance: DULOXETINE HYDROCHLORIDE
     Indication: PRODUCT USED FOR UNKNOWN INDICATION
     Dosage: UNK UNK, UNKNOWN
     Route: 058

REACTIONS (20)
  - Seasonal allergy [Unknown]
  - Injection site bruising [Unknown]
  - Fatigue [Unknown]
  - Tenderness [Unknown]
  - Arthralgia [Unknown]
  - Pain in extremity [Recovered/Resolved]
  - Oropharyngeal pain [Unknown]
  - Injection site pain [Unknown]
  - Dysstasia [Unknown]
  - Neck pain [Unknown]
  - Back pain [Unknown]
  - Upper-airway cough syndrome [Unknown]
  - Food intolerance [Unknown]
  - Musculoskeletal stiffness [Not Recovered/Not Resolved]
  - Skin plaque [Unknown]
  - Weight decreased [Unknown]
  - Uveitis [Unknown]
  - Injection site irritation [Unknown]
  - Hypokinesia [Unknown]
  - Gastric disorder [Unknown]
